FAERS Safety Report 8134784-6 (Version None)
Quarter: 2012Q1

REPORT INFORMATION
  Report Type: 
  Country: None (occurrence: None)
  Receive Date: 20120214
  Receipt Date: 20120208
  Transmission Date: 20120608
  Serious: No
  Sender: FDA-Public Use
  Company Number: US-PFIZER INC-2012035140

PATIENT
  Sex: Female
  Weight: 58.957 kg

DRUGS (4)
  1. CELEBREX [Suspect]
     Indication: SPONDYLITIS
     Dosage: 200 MG, 1X/DAY
     Route: 048
     Dates: start: 20110901, end: 20120101
  2. LIDODERM [Concomitant]
     Dosage: UNK
  3. TRAMADOL [Concomitant]
     Dosage: 50 MG, AS NEEDED
  4. TRAZODONE HYDROCHLORIDE [Suspect]
     Indication: SLEEP DISORDER

REACTIONS (6)
  - MUCOUS MEMBRANE DISORDER [None]
  - GINGIVAL ERYTHEMA [None]
  - OROPHARYNGEAL BLISTERING [None]
  - ORAL MUCOSAL DISCOLOURATION [None]
  - BLISTER [None]
  - PEMPHIGUS [None]
